FAERS Safety Report 23909303 (Version 1)
Quarter: 2024Q2

REPORT INFORMATION
  Report Type: Spontaneous
  Country: US (occurrence: US)
  Receive Date: 20240528
  Receipt Date: 20240528
  Transmission Date: 20240715
  Serious: No
  Sender: FDA-Public Use
  Company Number: US-AMNEAL PHARMACEUTICALS-2024-AMRX-00722

PATIENT
  Sex: Male

DRUGS (1)
  1. BUPRENORPHINE TRANSDERMAL SYSTEM [Suspect]
     Active Substance: BUPRENORPHINE
     Indication: Product used for unknown indication
     Dosage: ONCE A WEEK
     Route: 062
     Dates: start: 20240220

REACTIONS (3)
  - Application site papules [Unknown]
  - Application site burn [Unknown]
  - Overdose [Unknown]

NARRATIVE: CASE EVENT DATE: 20240226
